FAERS Safety Report 25648566 (Version 4)
Quarter: 2025Q3

REPORT INFORMATION
  Report Type: Spontaneous
  Country: JP (occurrence: JP)
  Receive Date: 20250806
  Receipt Date: 20250911
  Transmission Date: 20251020
  Serious: Yes (Other)
  Sender: ALEXION PHARMACEUTICALS
  Company Number: JP-ASTRAZENECA-240092124_012620_P_1

PATIENT
  Age: 40 Year
  Sex: Female
  Weight: 50 kg

DRUGS (12)
  1. TRUQAP [Suspect]
     Active Substance: CAPIVASERTIB
     Indication: Breast cancer
     Dosage: ON A 4-DAYS-ON, 3-DAYS-OFF SCHEDULE
     Dates: start: 20240807, end: 20240820
  2. TRUQAP [Suspect]
     Active Substance: CAPIVASERTIB
     Dosage: ON A 4-DAYS-ON, 3-DAYS-OFF SCHEDULE
     Dates: start: 20240821, end: 20240903
  3. TRUQAP [Suspect]
     Active Substance: CAPIVASERTIB
     Dosage: ON A 4-DAYS-ON, 3-DAYS-OFF SCHEDULE
     Dates: start: 20240911, end: 20241008
  4. TRUQAP [Suspect]
     Active Substance: CAPIVASERTIB
     Dosage: ON A 4-DAYS-ON, 3-DAYS-OFF SCHEDULE
     Dates: start: 20241009, end: 20241015
  5. FASLODEX [Suspect]
     Active Substance: FULVESTRANT
     Indication: Breast cancer
  6. FASLODEX [Suspect]
     Active Substance: FULVESTRANT
     Indication: Breast cancer recurrent
     Dosage: FOR THE FIRST 3 DOSES
     Dates: start: 20240806
  7. FASLODEX [Suspect]
     Active Substance: FULVESTRANT
     Dosage: 250 MILLIGRAM, Q4W
     Dates: end: 20241008
  8. OXYCODONE HYDROCHLORIDE [Suspect]
     Active Substance: OXYCODONE HYDROCHLORIDE
  9. OXYCODONE HYDROCHLORIDE [Suspect]
     Active Substance: OXYCODONE HYDROCHLORIDE
  10. LEUPLIN [Concomitant]
     Active Substance: LEUPROLIDE ACETATE
  11. DENOSUMAB [Concomitant]
     Active Substance: DENOSUMAB
     Dates: end: 20241108
  12. CALCIUM CARBONATE\CHOLECALCIFEROL\MAGNESIUM CARBONATE [Concomitant]
     Active Substance: CALCIUM CARBONATE\CHOLECALCIFEROL\MAGNESIUM CARBONATE
     Indication: Chemotherapy side effect prophylaxis
     Dates: end: 20241108

REACTIONS (8)
  - Diarrhoea [Recovered/Resolved]
  - Vomiting [Unknown]
  - Tumour marker increased [Unknown]
  - Stomatitis [Recovered/Resolved]
  - Malaise [Recovering/Resolving]
  - Nausea [Recovering/Resolving]
  - Pruritus [Recovered/Resolved]
  - Rash [Unknown]

NARRATIVE: CASE EVENT DATE: 20240807
